FAERS Safety Report 9731287 (Version 4)
Quarter: 2014Q2

REPORT INFORMATION
  Report Type: Spontaneous
  Country: US (occurrence: US)
  Receive Date: 20131203
  Receipt Date: 20140523
  Transmission Date: 20141212
  Serious: Yes (Hospitalization)
  Sender: FDA-Public Use
  Company Number: US-BAYER-2013-146765

PATIENT
  Age: 23 Year
  Sex: Female
  Weight: 86.17 kg

DRUGS (5)
  1. MIRENA [Suspect]
     Indication: CONTRACEPTION
     Dosage: 20 MCG/24HR, CONT
     Route: 015
     Dates: start: 20110829, end: 20111207
  2. CELEXA [Concomitant]
     Indication: DEPRESSION
     Dosage: 20 MG, UNK
     Dates: start: 200809
  3. VISTARIL [Concomitant]
     Dosage: 25 MG, UNK
  4. CITALOPRAM [Concomitant]
  5. HYDROXYZINE [Concomitant]

REACTIONS (11)
  - Uterine perforation [None]
  - Device issue [None]
  - Injury [None]
  - Pain [None]
  - Device breakage [None]
  - Device difficult to use [None]
  - Medical device discomfort [None]
  - Procedural pain [None]
  - Menorrhagia [Recovering/Resolving]
  - Scar [None]
  - Emotional distress [None]
